FAERS Safety Report 5476550-6 (Version None)
Quarter: 2007Q3

REPORT INFORMATION
  Report Type: 
  Country: None (occurrence: None)
  Receive Date: 20070926
  Receipt Date: 20070425
  Transmission Date: 20080115
  Serious: Yes (Other)
  Sender: FDA-Public Use
  Company Number: 2007033550

PATIENT
  Age: 6 Year
  Sex: Female
  Weight: 18.1439 kg

DRUGS (2)
  1. ZYRTEC [Suspect]
     Indication: SEASONAL ALLERGY
     Dosage: 5 MG (5 MG, 1 IN 1 D)
     Dates: start: 20060101
  2. MULTI-VITAMINS [Concomitant]

REACTIONS (4)
  - DYSURIA [None]
  - VAGINAL ERYTHEMA [None]
  - VAGINAL INFLAMMATION [None]
  - VULVOVAGINAL DISCOMFORT [None]
